FAERS Safety Report 7692745-5 (Version None)
Quarter: 2011Q3

REPORT INFORMATION
  Report Type: 
  Country: None (occurrence: None)
  Receive Date: 20110819
  Receipt Date: 20110809
  Transmission Date: 20111222
  Serious: Yes (Other)
  Sender: FDA-Public Use
  Company Number: CH-US-EMD SERONO, INC.-7045029

PATIENT
  Sex: Female
  Weight: 77 kg

DRUGS (7)
  1. REBIF [Suspect]
     Indication: MULTIPLE SCLEROSIS
     Route: 058
     Dates: start: 20080501
  2. MODASOMIL [Concomitant]
     Indication: SLEEP DISORDER
     Route: 048
     Dates: start: 20101201, end: 20110101
  3. SURMONTIL [Concomitant]
     Indication: SLEEP DISORDER
     Dosage: 1-2 TABLET A DAY
     Route: 048
     Dates: start: 20110304
  4. PANTOPRAZOLE [Concomitant]
     Indication: ABDOMINAL PAIN UPPER
     Route: 048
     Dates: start: 20030101
  5. IBUPROFEN [Concomitant]
     Indication: PAIN
     Route: 048
     Dates: start: 20030101
  6. ZOLPIDEM [Concomitant]
     Indication: SLEEP DISORDER
     Dosage: 1-3 TABLET A DAY
     Route: 048
     Dates: start: 20060101, end: 20110304
  7. ACETAMINOPHEN [Concomitant]
     Indication: PROPHYLAXIS
     Dosage: 1-3 TABLET A DAY
     Route: 048
     Dates: start: 20080501

REACTIONS (7)
  - ENDOMETRIAL HYPERPLASIA [None]
  - DEPRESSED MOOD [None]
  - UTERINE LEIOMYOMA [None]
  - PAPILLOMA VIRAL INFECTION [None]
  - PAIN [None]
  - OVARIAN CYST [None]
  - SLEEP DISORDER [None]
